FAERS Safety Report 10352224 (Version 1)
Quarter: 2014Q3

REPORT INFORMATION
  Report Type: Spontaneous
  Country: US (occurrence: US)
  Receive Date: 20140730
  Receipt Date: 20140730
  Transmission Date: 20150326
  Serious: No
  Sender: FDA-Public Use
  Company Number: US-ABBVIE-14P-163-1217753-00

PATIENT
  Age: 70 Year
  Sex: Female
  Weight: 79.45 kg

DRUGS (1)
  1. SYNTHROID [Suspect]
     Active Substance: LEVOTHYROXINE SODIUM
     Indication: HYPOTHYROIDISM
     Dates: start: 201311

REACTIONS (3)
  - Bronchitis [Recovering/Resolving]
  - Abdominal pain upper [Not Recovered/Not Resolved]
  - Product odour abnormal [Not Recovered/Not Resolved]

NARRATIVE: CASE EVENT DATE: 201401
